FAERS Safety Report 11047687 (Version 1)
Quarter: 2015Q2

REPORT INFORMATION
  Report Type: Spontaneous
  Country: US (occurrence: None)
  Receive Date: 20150417
  Receipt Date: 20150417
  Transmission Date: 20150821
  Serious: Yes (Hospitalization, Disabling)
  Sender: FDA-Public Use
  Company Number: None

PATIENT
  Age: 48 Year
  Sex: Female
  Weight: 88.45 kg

DRUGS (5)
  1. MULTI VITAMINS [Concomitant]
  2. MAGNESIUM [Concomitant]
     Active Substance: MAGNESIUM
  3. CIPROFLOXACIN 500 [Suspect]
     Active Substance: CIPROFLOXACIN
     Indication: DIVERTICULITIS
     Dosage: 500 (14 PILLS) TWICE DAILY TAKEN BY MOUTH
     Route: 048
     Dates: start: 2010, end: 2013
  4. METOPROLOL [Concomitant]
     Active Substance: METOPROLOL
  5. ALIEVE [Concomitant]

REACTIONS (10)
  - Dyspnoea [None]
  - Hypoaesthesia [None]
  - Rash generalised [None]
  - Myalgia [None]
  - Supraventricular tachycardia [None]
  - Fatigue [None]
  - Asthenia [None]
  - Arthralgia [None]
  - Retinal disorder [None]
  - Depressed level of consciousness [None]
